FAERS Safety Report 15519771 (Version 1)
Quarter: 2018Q4

REPORT INFORMATION
  Report Type: Spontaneous
  Country: MY (occurrence: MY)
  Receive Date: 20181017
  Receipt Date: 20181017
  Transmission Date: 20190205
  Serious: Yes (Other)
  Sender: FDA-Public Use
  Company Number: MY-ALLERGAN-1849458US

PATIENT
  Age: 40 Year
  Sex: Female

DRUGS (2)
  1. PREDNISOLONE UNK [Suspect]
     Active Substance: PREDNISOLONE
     Indication: INFLAMMATION
     Dosage: UNK, TID
     Route: 047
  2. HOMATROPINE [Suspect]
     Active Substance: HOMATROPINE\HOMATROPINE HYDROBROMIDE
     Indication: INFLAMMATION
     Dosage: UNK, TID
     Route: 061

REACTIONS (5)
  - Iris neovascularisation [Unknown]
  - Cataract [Unknown]
  - Visual acuity reduced [Unknown]
  - Pupillary block [Unknown]
  - Intraocular pressure increased [Unknown]
